FAERS Safety Report 13351694 (Version 3)
Quarter: 2017Q3

REPORT INFORMATION
  Report Type: Spontaneous
  Country: CA (occurrence: CA)
  Receive Date: 20170320
  Receipt Date: 20170830
  Transmission Date: 20171127
  Serious: Yes (Hospitalization, Other)
  Sender: FDA-Public Use
  Company Number: CA-PFIZER INC-2017113730

PATIENT
  Age: 17 Year
  Sex: Female

DRUGS (1)
  1. ADVIL ARTHRITIS PAIN [Suspect]
     Active Substance: IBUPROFEN
     Indication: PAIN
     Dosage: 1 DF, 1X/DAY
     Dates: start: 20170312, end: 20170312

REACTIONS (7)
  - Psychological trauma [Unknown]
  - Product use complaint [Unknown]
  - Foreign body in respiratory tract [Not Recovered/Not Resolved]
  - Fear [Unknown]
  - Dysphagia [Unknown]
  - Choking [Not Recovered/Not Resolved]
  - Flashback [Unknown]

NARRATIVE: CASE EVENT DATE: 2017
